FAERS Safety Report 8405479-6 (Version None)
Quarter: 2012Q2

REPORT INFORMATION
  Report Type: 
  Country: None (occurrence: None)
  Receive Date: 20120604
  Receipt Date: 20120523
  Transmission Date: 20120825
  Serious: Yes (Hospitalization)
  Sender: FDA-Public Use
  Company Number: DE-BIOGENIDEC-2012BI018277

PATIENT
  Age: 30 Year
  Sex: Male
  Weight: 85 kg

DRUGS (2)
  1. TIZANIDINE HYDROCHLORIDE [Concomitant]
     Indication: MUSCLE SPASTICITY
     Route: 048
     Dates: start: 20100615
  2. AVONEX [Suspect]
     Indication: RELAPSING-REMITTING MULTIPLE SCLEROSIS
     Route: 030
     Dates: start: 20100122, end: 20111101

REACTIONS (5)
  - CONVULSION [None]
  - ROAD TRAFFIC ACCIDENT [None]
  - MULTIPLE SCLEROSIS RELAPSE [None]
  - UPPER LIMB FRACTURE [None]
  - MUSCLE SPASTICITY [None]
